FAERS Safety Report 5237320-7 (Version None)
Quarter: 2007Q1

REPORT INFORMATION
  Report Type: 
  Country: None (occurrence: None)
  Receive Date: 20070213
  Receipt Date: 20070201
  Transmission Date: 20070707
  Serious: Yes (Other)
  Sender: FDA-Public Use
  Company Number: HQWYE292102FEB07

PATIENT
  Age: 95 Year
  Sex: Female

DRUGS (8)
  1. PANTOPRAZOLE SODIUM [Suspect]
     Indication: GASTROINTESTINAL HAEMORRHAGE
     Dosage: 40 MG, FREQUENCY NOT SPECIFIED
     Route: 042
     Dates: start: 20060211, end: 20060219
  2. MAGNESIUM SULFATE [Concomitant]
     Dosage: ^DF^
     Route: 042
     Dates: start: 20060206, end: 20060206
  3. MAGNESIUM SULFATE [Concomitant]
     Dosage: ^DF^
     Route: 042
     Dates: start: 20060210, end: 20060210
  4. MAGNESIUM SULFATE [Concomitant]
     Dosage: ^DF^
     Route: 042
     Dates: start: 20060215, end: 20060215
  5. ZYPREXA [Concomitant]
     Dosage: 5 MG, FREQUENCY NOT SPECIFIED
     Route: 048
     Dates: start: 20060216
  6. DILANTIN [Interacting]
     Indication: EPILEPSY
     Route: 042
     Dates: start: 20060202, end: 20060206
  7. DILANTIN [Interacting]
     Route: 042
     Dates: start: 20060207, end: 20060217
  8. DILANTIN [Interacting]
     Route: 042
     Dates: start: 20060201, end: 20060219

REACTIONS (3)
  - ANTICONVULSANT DRUG LEVEL INCREASED [None]
  - CONDITION AGGRAVATED [None]
  - DRUG INTERACTION [None]
